FAERS Safety Report 17099275 (Version 3)
Quarter: 2019Q4

REPORT INFORMATION
  Report Type: Spontaneous
  Country: US (occurrence: US)
  Receive Date: 20191202
  Receipt Date: 20191209
  Transmission Date: 20200122
  Serious: No
  Sender: FDA-Public Use
  Company Number: US-PFIZER INC-2019514556

PATIENT
  Age: 55 Year
  Sex: Female
  Weight: 75.75 kg

DRUGS (1)
  1. ESTRING [Suspect]
     Active Substance: ESTRADIOL
     Indication: MENOPAUSE
     Dosage: 2 MG, UNK
     Route: 067

REACTIONS (6)
  - Drug ineffective [Unknown]
  - Vulvovaginal dryness [Recovering/Resolving]
  - Vulvovaginal mycotic infection [Unknown]
  - Vulvovaginal pruritus [Recovering/Resolving]
  - Vulvovaginal discomfort [Recovering/Resolving]
  - Product complaint [Unknown]
